FAERS Safety Report 21662959 (Version 1)
Quarter: 2022Q4

REPORT INFORMATION
  Report Type: Spontaneous
  Country: GB (occurrence: GB)
  Receive Date: 20221130
  Receipt Date: 20221130
  Transmission Date: 20230113
  Serious: Yes (Other)
  Sender: FDA-Public Use
  Company Number: GB-PFIZER INC-202201331721

PATIENT

DRUGS (2)
  1. VFEND [Interacting]
     Active Substance: VORICONAZOLE
     Dosage: UNK
  2. BUDESONIDE [Interacting]
     Active Substance: BUDESONIDE
     Dosage: UNK

REACTIONS (2)
  - Adrenal insufficiency [Unknown]
  - Drug interaction [Unknown]
